FAERS Safety Report 6568042-8 (Version None)
Quarter: 2010Q1

REPORT INFORMATION
  Report Type: 
  Country: None (occurrence: None)
  Receive Date: 20100203
  Receipt Date: 20100121
  Transmission Date: 20100710
  Serious: Yes (Hospitalization)
  Sender: FDA-Public Use
  Company Number: RO-ELI_LILLY_AND_COMPANY-RO200910007917

PATIENT
  Sex: Female
  Weight: 40 kg

DRUGS (2)
  1. ZYPREXA [Suspect]
     Indication: SCHIZOPHRENIA, PARANOID TYPE
     Dosage: 20 MG, 4/D
     Route: 065
     Dates: start: 20080101, end: 20090901
  2. DIAZEPAM [Concomitant]
     Indication: SCHIZOPHRENIA
     Dosage: 10 MG, 4/D
     Route: 065

REACTIONS (8)
  - ALVEOLITIS ALLERGIC [None]
  - APATHY [None]
  - CHRONIC RESPIRATORY FAILURE [None]
  - HYPOPHAGIA [None]
  - IRON DEFICIENCY ANAEMIA [None]
  - METABOLIC SYNDROME [None]
  - PYELONEPHRITIS CHRONIC [None]
  - RENAL FAILURE CHRONIC [None]
